FAERS Safety Report 17552916 (Version 11)
Quarter: 2022Q2

REPORT INFORMATION
  Report Type: Spontaneous
  Country: GB (occurrence: GB)
  Receive Date: 20200318
  Receipt Date: 20220519
  Transmission Date: 20220720
  Serious: Yes (Life-Threatening, Hospitalization, Disabling, Congenital Anomaly, Other)
  Sender: FDA-Public Use
  Company Number: GB-SUN PHARMACEUTICAL INDUSTRIES LTD-2020RR-240586

PATIENT
  Age: 50 Year
  Sex: Female
  Weight: 60.6 kg

DRUGS (10)
  1. VENLAFAXINE [Suspect]
     Active Substance: VENLAFAXINE HYDROCHLORIDE
     Indication: Depression
     Dosage: 75 MILLIGRAM, QD, DISCONTINUED THEN REINTRODUCED AT REDUCED DOSE ON PSYCHIATRY ADVICE
     Route: 048
  2. VENLAFAXINE [Suspect]
     Active Substance: VENLAFAXINE HYDROCHLORIDE
     Indication: Anxiety
     Dosage: 150 MILLIGRAM, QD, DISCONTINUED THEN REINTRODUCED AT REDUCED DOSE ON PSYCHIATRY ADVICE
     Route: 048
  3. VENLAFAXINE [Suspect]
     Active Substance: VENLAFAXINE HYDROCHLORIDE
     Dosage: 150 MG, QD (75 MG,2X/DAY), TABLET
     Route: 065
     Dates: start: 2015
  4. EFFEXOR XR [Suspect]
     Active Substance: VENLAFAXINE HYDROCHLORIDE
     Indication: Depression
     Dosage: UNK, PROLONGED-RELAESE CAPSULE, EFFEXOR XL ()
     Route: 065
  5. EFFEXOR XR [Suspect]
     Active Substance: VENLAFAXINE HYDROCHLORIDE
     Dosage: UNK, PROLONGED-RELAESE CAPSULE, EFFEXOR XL ()
     Route: 065
  6. BALSALAZIDE [Suspect]
     Active Substance: BALSALAZIDE
     Indication: Colitis ulcerative
     Dosage: 2.25 GRAM, DAILY,  3 CAPSULES ONCE DAILY
     Route: 048
  7. BALSALAZIDE [Suspect]
     Active Substance: BALSALAZIDE
     Dosage: 75 MILLIGRAM, AM (75 MILLIGRAM (750 MG, 3 TABS IN
     Route: 048
     Dates: start: 2008, end: 20200115
  8. TRIMETHOPRIM [Concomitant]
     Active Substance: TRIMETHOPRIM
     Indication: Product used for unknown indication
     Dosage: UNK (3 DAY COURSE) ()
     Route: 065
     Dates: start: 20191204
  9. BALSALAZIDE DISODIUM [Concomitant]
     Active Substance: BALSALAZIDE DISODIUM
     Indication: Colitis ulcerative
     Dosage: 750 MILLIGRAM, 3 TABS IN THE MORNING
     Route: 048
     Dates: start: 2008, end: 20200115
  10. BALSALAZIDE [Concomitant]
     Active Substance: BALSALAZIDE
     Indication: Product used for unknown indication

REACTIONS (10)
  - Cardiac failure [Not Recovered/Not Resolved]
  - Effusion [Not Recovered/Not Resolved]
  - Left ventricular dysfunction [Not Recovered/Not Resolved]
  - Chest discomfort [Unknown]
  - Congestive cardiomyopathy [Not Recovered/Not Resolved]
  - Nausea [Unknown]
  - Dyspnoea [Unknown]
  - Cardiomyopathy [Not Recovered/Not Resolved]
  - Insomnia [Unknown]
  - Heart rate increased [Unknown]

NARRATIVE: CASE EVENT DATE: 20200108
